FAERS Safety Report 14996114 (Version 1)
Quarter: 2018Q2

REPORT INFORMATION
  Report Type: Spontaneous
  Country: US (occurrence: US)
  Receive Date: 20180611
  Receipt Date: 20180611
  Transmission Date: 20180711
  Serious: Yes (Other)
  Sender: FDA-Public Use
  Company Number: US-PFIZER INC-2018231077

PATIENT
  Sex: Female

DRUGS (1)
  1. ALPRAZOLAM. [Suspect]
     Active Substance: ALPRAZOLAM
     Dosage: UNK

REACTIONS (5)
  - Cervical vertebral fracture [Unknown]
  - Breast cancer metastatic [Unknown]
  - Metastases to spine [Unknown]
  - Metastases to neck [Unknown]
  - Paralysis [Unknown]
